FAERS Safety Report 10450034 (Version 2)
Quarter: 2014Q3

REPORT INFORMATION
  Report Type: Spontaneous
  Country: JP (occurrence: JP)
  Receive Date: 20140912
  Receipt Date: 20140917
  Transmission Date: 20150326
  Serious: Yes (Death, Other)
  Sender: FDA-Public Use
  Company Number: JP-TEVA-508534USA

PATIENT
  Age: 55 Year
  Sex: Male

DRUGS (1)
  1. BENDAMUSTINE HYDROCHLORIDE [Suspect]
     Active Substance: BENDAMUSTINE HYDROCHLORIDE
     Indication: DIFFUSE LARGE B-CELL LYMPHOMA
     Route: 042

REACTIONS (6)
  - Infection [Unknown]
  - Cytomegalovirus viraemia [Fatal]
  - Melaena [Fatal]
  - Pancytopenia [Unknown]
  - Off label use [Unknown]
  - Hepatic function abnormal [Unknown]
